FAERS Safety Report 4302839-X (Version None)
Quarter: 2004Q1

REPORT INFORMATION
  Report Type: 
  Country: None (occurrence: None)
  Receive Date: 20040220
  Receipt Date: 20040204
  Transmission Date: 20041129
  Serious: Yes (Death, Hospitalization)
  Sender: FDA-Public Use
  Company Number: A-US2003-03927

PATIENT
  Age: 58 Year
  Sex: Female

DRUGS (4)
  1. TRACLEER [Suspect]
     Indication: PULMONARY HYPERTENSION
     Dosage: 125 MG, BID, ORAL;  62.5 MG, BID, ORAL
     Route: 048
     Dates: start: 20020901, end: 20021001
  2. TRACLEER [Suspect]
     Indication: PULMONARY HYPERTENSION
     Dosage: 125 MG, BID, ORAL;  62.5 MG, BID, ORAL
     Route: 048
     Dates: start: 20021001, end: 20030920
  3. ZAROXOLYN [Concomitant]
  4. OXYGEN (OXYGEN) [Concomitant]

REACTIONS (11)
  - ADRENAL INSUFFICIENCY [None]
  - CARDIAC FAILURE [None]
  - DISEASE PROGRESSION [None]
  - GENERAL PHYSICAL HEALTH DETERIORATION [None]
  - HEPATIC FAILURE [None]
  - HYPOVENTILATION [None]
  - MULTI-ORGAN FAILURE [None]
  - PULMONARY HYPERTENSION [None]
  - RENAL FAILURE [None]
  - SEPSIS [None]
  - WEIGHT INCREASED [None]
